FAERS Safety Report 11078099 (Version 1)
Quarter: 2015Q2

REPORT INFORMATION
  Report Type: Spontaneous
  Country: US (occurrence: US)
  Receive Date: 20150430
  Receipt Date: 20150430
  Transmission Date: 20150821
  Serious: Yes (Other)
  Sender: FDA-Public Use
  Company Number: US-RB-076441-15

PATIENT
  Age: 19 Year
  Sex: Male

DRUGS (1)
  1. DELSYM [Suspect]
     Active Substance: DEXTROMETHORPHAN
     Indication: PRODUCT USED FOR UNKNOWN INDICATION
     Route: 065

REACTIONS (4)
  - Antisocial behaviour [Unknown]
  - Hallucination [Unknown]
  - Amnesia [Unknown]
  - Euphoric mood [Unknown]

NARRATIVE: CASE EVENT DATE: 20150412
